FAERS Safety Report 5300048-9 (Version None)
Quarter: 2007Q2

REPORT INFORMATION
  Report Type: 
  Country: None (occurrence: None)
  Receive Date: 20070410
  Receipt Date: 20070402
  Transmission Date: 20071010
  Serious: Yes (Other)
  Sender: FDA-Public Use
  Company Number: B0461960A

PATIENT
  Age: 63 Year
  Sex: Female
  Weight: 59.8748 kg

DRUGS (11)
  1. ALKERAN [Suspect]
     Indication: STEM CELL TRANSPLANT
     Dosage: 150 MG / D??????????????????????????
     Dates: start: 20061016, end: 20061017
  2. BLOOD (FORMULATION UNKNOWN) (BLOOD) [Suspect]
     Dates: start: 20061024, end: 20061101
  3. FILGRASTIM [Concomitant]
  4. CEFEPIME [Concomitant]
  5. LEVOFLOXACIN [Concomitant]
  6. FLUCONAZOLE [Concomitant]
  7. RANITIDINE HYDROCHLORIDE [Concomitant]
  8. TEPRENONE [Concomitant]
  9. HERBAL MEDICATION [Concomitant]
  10. BROTIZOLAM [Concomitant]
  11. CO-TRIMOXAZOLE [Concomitant]

REACTIONS (4)
  - ANTI-HBS ANTIBODY POSITIVE [None]
  - HEPATITIS B E ANTIGEN POSITIVE [None]
  - HEPATITIS B SURFACE ANTIGEN POSITIVE [None]
  - HEPATITIS B VIRUS [None]
